FAERS Safety Report 5423930-0 (Version None)
Quarter: 2007Q3

REPORT INFORMATION
  Report Type: 
  Country: None (occurrence: None)
  Receive Date: 20070823
  Receipt Date: 20070815
  Transmission Date: 20080115
  Serious: Yes (Other)
  Sender: FDA-Public Use
  Company Number: US-SANOFI-SYNTHELABO-A03200704403

PATIENT
  Sex: Female

DRUGS (7)
  1. WARFARIN SODIUM [Concomitant]
     Route: 065
     Dates: start: 20070301, end: 20070701
  2. WARFARIN SODIUM [Concomitant]
     Dosage: 1/2 OF A 5 MG TABLET (2.5 MG) (MON + FRIDAY) ALTERNATING WITH 5 MG ON OTHER DAYS
     Route: 048
     Dates: start: 20070701
  3. LIPITOR [Concomitant]
     Dosage: UNK
     Route: 065
  4. DIURETIC [Concomitant]
     Dosage: UNK
     Route: 065
  5. LEVOXYL [Concomitant]
     Route: 065
  6. DIOVAN [Concomitant]
     Dosage: UNK
     Route: 065
     Dates: start: 19950101
  7. PLAVIX [Suspect]
     Indication: STENT PLACEMENT
     Route: 048
     Dates: start: 20070301

REACTIONS (14)
  - ABDOMINAL PAIN [None]
  - ARTHRALGIA [None]
  - BACK PAIN [None]
  - CONTUSION [None]
  - DIPLOPIA [None]
  - EPISTAXIS [None]
  - FATIGUE [None]
  - HYPERSENSITIVITY [None]
  - INFLUENZA LIKE ILLNESS [None]
  - MALAISE [None]
  - MUSCULAR WEAKNESS [None]
  - OCULAR HYPERAEMIA [None]
  - PRURITUS GENERALISED [None]
  - WEIGHT DECREASED [None]
